FAERS Safety Report 24078023 (Version 1)
Quarter: 2024Q3

REPORT INFORMATION
  Report Type: Spontaneous
  Country: NO (occurrence: NO)
  Receive Date: 20240711
  Receipt Date: 20240711
  Transmission Date: 20241016
  Serious: Yes (Hospitalization, Other)
  Sender: JEROME STEVENS
  Company Number: NO-Jerome Stevens Pharmaceuticals, Inc.-2159033

PATIENT
  Age: 74 Year
  Sex: Female

DRUGS (4)
  1. DIGOXIN [Suspect]
     Active Substance: DIGOXIN
     Route: 065
  2. PRAZOSIN [Suspect]
     Active Substance: PRAZOSIN
  3. TELMISARTAN [Suspect]
     Active Substance: TELMISARTAN
  4. APIXABAN [Suspect]
     Active Substance: APIXABAN

REACTIONS (1)
  - BRASH syndrome [Recovered/Resolved]
